FAERS Safety Report 5642741-4 (Version None)
Quarter: 2008Q1

REPORT INFORMATION
  Report Type: 
  Country: None (occurrence: None)
  Receive Date: 20080227
  Receipt Date: 20080227
  Transmission Date: 20080703
  Serious: Yes (Hospitalization)
  Sender: FDA-Public Use
  Company Number: None

PATIENT
  Sex: Male
  Weight: 81.6475 kg

DRUGS (4)
  1. KETOCONAZOLE [Suspect]
     Indication: PROSTATE CANCER
     Dosage: 400MG PO TID (THERAPY DATES: PRIOR TO ADMISSION)
     Route: 048
  2. DIOVAN [Concomitant]
  3. ADVAIR DISKUS 100/50 [Concomitant]
  4. HYDROCORTISONE [Concomitant]

REACTIONS (6)
  - CHROMATURIA [None]
  - HEPATIC ENZYME INCREASED [None]
  - JAUNDICE [None]
  - NAUSEA [None]
  - OCULAR ICTERUS [None]
  - VOMITING [None]
